FAERS Safety Report 6618601-9 (Version None)
Quarter: 2010Q1

REPORT INFORMATION
  Report Type: 
  Country: None (occurrence: None)
  Receive Date: 20100308
  Receipt Date: 20100124
  Transmission Date: 20100710
  Serious: Yes (Hospitalization, Other)
  Sender: FDA-Public Use
  Company Number: US-BAXTER-2009BH011011

PATIENT
  Age: 32 Year
  Sex: Female
  Weight: 115 kg

DRUGS (11)
  1. HEPARIN SODIUM INJECTION [Suspect]
     Indication: PLASMAPHERESIS
     Route: 065
     Dates: start: 20080301, end: 20080401
  2. HEPARIN SODIUM INJECTION [Suspect]
     Indication: IMMUNOGLOBULINS
     Route: 065
     Dates: start: 20080301, end: 20080401
  3. PROGRAF [Concomitant]
     Indication: DRUG USE FOR UNKNOWN INDICATION
     Route: 048
  4. PROGRAF [Concomitant]
     Route: 048
  5. CALCIUM CARBONATE W/VITAMIN D NOS [Concomitant]
     Indication: DRUG USE FOR UNKNOWN INDICATION
     Route: 048
  6. SINGULAIR [Concomitant]
     Indication: DRUG USE FOR UNKNOWN INDICATION
     Route: 048
  7. MESTINON [Concomitant]
     Indication: DRUG USE FOR UNKNOWN INDICATION
     Route: 048
  8. PREDNISONE [Concomitant]
     Indication: DRUG USE FOR UNKNOWN INDICATION
     Route: 065
  9. ROBINUL [Concomitant]
     Indication: DRUG USE FOR UNKNOWN INDICATION
     Route: 048
  10. NEXIUM [Concomitant]
     Indication: DRUG USE FOR UNKNOWN INDICATION
     Route: 048
  11. NASONEX [Concomitant]
     Indication: DRUG USE FOR UNKNOWN INDICATION
     Route: 045

REACTIONS (4)
  - ANAEMIA [None]
  - BLOOD FIBRINOGEN DECREASED [None]
  - HEPARIN-INDUCED THROMBOCYTOPENIA [None]
  - HYPERSENSITIVITY [None]
